FAERS Safety Report 5242869-7 (Version None)
Quarter: 2007Q1

REPORT INFORMATION
  Report Type: 
  Country: None (occurrence: None)
  Receive Date: 20070214
  Receipt Date: 20070206
  Transmission Date: 20070707
  Serious: Yes (Death, Hospitalization, Disabling, Other)
  Sender: FDA-Public Use
  Company Number: 163-20785-07010094

PATIENT
  Age: 58 Year
  Sex: Male

DRUGS (5)
  1. THALOMID [Suspect]
     Indication: MULTIPLE MYELOMA
     Dosage: 200 MG, 1 IN 1 D, ORAL
     Route: 048
     Dates: start: 20061006, end: 20061201
  2. DEXAMETHASONE TAB [Concomitant]
  3. RADIATIO0N THERAPY [Concomitant]
  4. VINCRISTINE [Concomitant]
  5. ADRIAMYCIN PFS [Concomitant]

REACTIONS (14)
  - ABASIA [None]
  - CONFUSIONAL STATE [None]
  - DYSPNOEA [None]
  - FALL [None]
  - HYPOAESTHESIA [None]
  - LUMBAR SPINAL STENOSIS [None]
  - MALIGNANT NEOPLASM PROGRESSION [None]
  - MENINGEAL NEOPLASM [None]
  - MENTAL STATUS CHANGES [None]
  - METASTASES TO CENTRAL NERVOUS SYSTEM [None]
  - MULTIPLE MYELOMA [None]
  - PARAESTHESIA [None]
  - REFUSAL OF TREATMENT BY PATIENT [None]
  - SPINAL CORD COMPRESSION [None]
